FAERS Safety Report 25689214 (Version 1)
Quarter: 2025Q3

REPORT INFORMATION
  Report Type: Spontaneous
  Country: US (occurrence: US)
  Receive Date: 20250818
  Receipt Date: 20250818
  Transmission Date: 20251020
  Serious: Yes (Life-Threatening, Hospitalization, Other)
  Sender: LUPIN
  Company Number: US-LUPIN PHARMACEUTICALS INC.-2025-07276

PATIENT
  Age: 19 Year

DRUGS (8)
  1. CALCIUM [Suspect]
     Active Substance: CALCIUM
     Indication: Hypotension
     Route: 065
  2. AMLODIPINE BESYLATE [Suspect]
     Active Substance: AMLODIPINE BESYLATE
     Indication: Product used for unknown indication
  3. HYDROXYZINE [Suspect]
     Active Substance: HYDROXYZINE HYDROCHLORIDE
     Indication: Product used for unknown indication
  4. SOLIFENACIN [Suspect]
     Active Substance: SOLIFENACIN
     Indication: Product used for unknown indication
  5. NOREPINEPHRINE [Suspect]
     Active Substance: NOREPINEPHRINE
     Indication: Hypotension
     Route: 065
  6. EPINEPHRINE [Suspect]
     Active Substance: EPINEPHRINE
     Indication: Hypotension
     Route: 065
  7. VASOPRESSIN [Suspect]
     Active Substance: VASOPRESSIN
     Indication: Hypotension
     Route: 065
  8. ANGIOTENSIN II [Suspect]
     Active Substance: ANGIOTENSIN II
     Indication: Hypotension
     Route: 065

REACTIONS (12)
  - Intentional overdose [Unknown]
  - Toxicity to various agents [Unknown]
  - Somnolence [Unknown]
  - Hyperglycaemia [Unknown]
  - Hypotension [Recovering/Resolving]
  - Cardiac dysfunction [Unknown]
  - Condition aggravated [Unknown]
  - Oliguria [Unknown]
  - Blood lactic acid abnormal [Unknown]
  - Cardiac failure [Unknown]
  - Drug ineffective for unapproved indication [Unknown]
  - Off label use [Unknown]
